FAERS Safety Report 6012713-9 (Version None)
Quarter: 2008Q4

REPORT INFORMATION
  Report Type: 
  Country: None (occurrence: None)
  Receive Date: 20081217
  Receipt Date: 20081203
  Transmission Date: 20090506
  Serious: Yes (Hospitalization, Other)
  Sender: FDA-Public Use
  Company Number: 1000003133

PATIENT
  Age: 68 Year
  Sex: Female

DRUGS (10)
  1. CITALOPRAM HYDROBROMIDE [Suspect]
     Indication: DEPRESSION
     Dosage: 40 MG (20 MG, 2 IN 1 D), ORAL
     Route: 048
     Dates: end: 20081012
  2. ESOMEPRAZOLE MAGNESIUM [Suspect]
     Dosage: 40 MG (40 MG, 1 IN 1 D), ORAL
     Route: 048
     Dates: end: 20081013
  3. LANSOPRAZOLE [Suspect]
     Dosage: ORAL
     Route: 048
  4. CO-DYDRAMOL [Concomitant]
  5. NIFEDIPINE [Concomitant]
  6. PERINDOPRIL [Concomitant]
  7. ALBUTEROL SULFATE [Concomitant]
  8. SERETIDE [Concomitant]
  9. VITAMIN B COMPLEX CAP [Concomitant]
  10. ZOPICLONE [Concomitant]

REACTIONS (4)
  - CHEST PAIN [None]
  - CHRONIC OBSTRUCTIVE PULMONARY DISEASE [None]
  - CONDITION AGGRAVATED [None]
  - HYPONATRAEMIA [None]
